FAERS Safety Report 20820391 (Version 2)
Quarter: 2022Q2

REPORT INFORMATION
  Report Type: Spontaneous
  Country: FR (occurrence: FR)
  Receive Date: 20220512
  Receipt Date: 20220520
  Transmission Date: 20220721
  Serious: Yes (Other)
  Sender: FDA-Public Use
  Company Number: None

PATIENT
  Age: 41 Year
  Sex: Female

DRUGS (16)
  1. LANSOPRAZOLE [Suspect]
     Active Substance: LANSOPRAZOLE
     Indication: Prophylaxis against gastrointestinal ulcer
     Dosage: 15 MILLIGRAM, QD
     Route: 048
     Dates: start: 20220125, end: 20220128
  2. ACETAMINOPHEN [Suspect]
     Active Substance: ACETAMINOPHEN
     Indication: Procedural pain
     Dosage: 1 GRAM, Q6HR
     Route: 048
     Dates: start: 20220125, end: 20220131
  3. DEXAMETHASONE [Suspect]
     Active Substance: DEXAMETHASONE
     Indication: Surgery
     Dosage: UNK
     Route: 041
     Dates: start: 20220125, end: 20220125
  4. PROPOFOL [Suspect]
     Active Substance: PROPOFOL
     Indication: Anaesthesia
     Dosage: UNK
     Route: 041
     Dates: start: 20220125, end: 20220125
  5. CEFAZOLIN [Suspect]
     Active Substance: CEFAZOLIN
     Indication: Anaesthesia
     Dosage: UNK
     Route: 041
     Dates: start: 20220125, end: 20220125
  6. MIDAZOLAM HYDROCHLORIDE [Suspect]
     Active Substance: MIDAZOLAM HYDROCHLORIDE
     Indication: Anaesthesia
     Dosage: UNK UNK, QD
     Route: 041
     Dates: start: 20220125, end: 20220125
  7. NOREPINEPHRINE [Suspect]
     Active Substance: NOREPINEPHRINE
     Indication: Anaesthesia
     Dosage: UNK UNK, QD
     Route: 041
     Dates: start: 20220125, end: 20220125
  8. EPHEDRINE [Suspect]
     Active Substance: EPHEDRINE
     Indication: Anaesthesia
     Dosage: UNK
     Route: 041
     Dates: start: 20220125, end: 20220125
  9. REMIFENTANIL HYDROCHLORIDE [Suspect]
     Active Substance: REMIFENTANIL HYDROCHLORIDE
     Indication: Anaesthesia
     Dosage: UNK
     Route: 041
     Dates: start: 20220125, end: 20220125
  10. KETAMINE [Suspect]
     Active Substance: KETAMINE
     Indication: Anaesthesia
     Dosage: UNK
     Route: 041
     Dates: start: 20220125, end: 20220125
  11. KETOPROFEN [Suspect]
     Active Substance: KETOPROFEN
     Indication: Procedural pain
     Dosage: 200 MILLIGRAM, QD
     Route: 065
     Dates: start: 20220125, end: 20220128
  12. NOREPINEPHRINE [Suspect]
     Active Substance: NOREPINEPHRINE
     Indication: Anaesthesia
     Dosage: UNK
     Route: 041
     Dates: start: 20220125, end: 20220125
  13. TAMOXIFEN CITRATE [Concomitant]
     Active Substance: TAMOXIFEN CITRATE
     Indication: Breast cancer
     Dosage: 20 MG, QD
     Route: 048
  14. ENANTONE LP [Concomitant]
     Active Substance: LEUPROLIDE ACETATE
     Indication: Breast cancer
     Dosage: 3.75 MG, QMO
     Route: 030
  15. ENANTONE LP [Concomitant]
     Active Substance: LEUPROLIDE ACETATE
     Indication: Breast cancer
     Dosage: 3.75 MILLIGRAM, MONTHLY
     Route: 030
  16. TRAMADOL HYDROCHLORIDE [Concomitant]
     Active Substance: TRAMADOL HYDROCHLORIDE
     Indication: Procedural pain
     Dosage: 50 MG
     Route: 048

REACTIONS (2)
  - Cholestasis [Not Recovered/Not Resolved]
  - Hepatic cytolysis [Not Recovered/Not Resolved]

NARRATIVE: CASE EVENT DATE: 20220215
